FAERS Safety Report 23517395 (Version 2)
Quarter: 2024Q1

REPORT INFORMATION
  Report Type: Spontaneous
  Country: US (occurrence: US)
  Receive Date: 20240213
  Receipt Date: 20240301
  Transmission Date: 20240410
  Serious: No
  Sender: FDA-Public Use
  Company Number: US-PFIZER INC-202400024808

PATIENT
  Age: 15 Year
  Sex: Male
  Weight: 56.7 kg

DRUGS (2)
  1. GENOTROPIN [Suspect]
     Active Substance: SOMATROPIN
     Indication: Small for dates baby
     Dosage: 3.6 MG, 1X/DAY
     Route: 058
  2. FLUOXETINE [Concomitant]
     Active Substance: FLUOXETINE HYDROCHLORIDE
     Indication: Anxiety
     Dosage: 30 MG

REACTIONS (2)
  - Scoliosis [Unknown]
  - Device breakage [Unknown]

NARRATIVE: CASE EVENT DATE: 20240124
